FAERS Safety Report 15884455 (Version 2)
Quarter: 2019Q1

REPORT INFORMATION
  Report Type: Report from Study
  Country: IT (occurrence: IT)
  Receive Date: 20190129
  Receipt Date: 20190322
  Transmission Date: 20190417
  Serious: Yes (Hospitalization)
  Sender: FDA-Public Use
  Company Number: IT-MYLANLABS-2019M1007389

PATIENT
  Age: 47 Year
  Sex: Female

DRUGS (7)
  1. GAVISCON                           /00237601/ [Concomitant]
     Active Substance: ALUMINUM HYDROXIDE\MAGNESIUM CARBONATE
     Route: 048
  2. BRUFEN 600 MG COMPRESSE RIVESTITE [Suspect]
     Active Substance: IBUPROFEN
     Indication: PERICARDITIS
     Dosage: 1800 MILLIGRAM, QD
     Route: 048
     Dates: start: 20180522
  3. LUCEN                              /01479302/ [Concomitant]
     Active Substance: ESOMEPRAZOLE
     Dosage: 40 MILLIGRAM
     Route: 048
  4. COLCHICINA LIRCA [Concomitant]
     Active Substance: COLCHICINE
     Indication: PERICARDITIS
     Dosage: 1 MILLIGRAM
     Route: 048
  5. DELTACORTENE [Suspect]
     Active Substance: PREDNISONE
     Indication: PERICARDITIS
     Dosage: 5 MILLIGRAM, QD
     Route: 048
     Dates: start: 20180617
  6. DELTACORTENE [Suspect]
     Active Substance: PREDNISONE
     Dosage: 5 MILLIGRAM, QD
     Route: 048
     Dates: start: 20180623
  7. DELTACORTENE [Suspect]
     Active Substance: PREDNISONE
     Indication: PERICARDITIS
     Dosage: 25 MILLIGRAM, QD
     Route: 048
     Dates: start: 20180617

REACTIONS (4)
  - Drug abuse [Recovering/Resolving]
  - Pericarditis [Recovering/Resolving]
  - Hypertension [Recovering/Resolving]
  - Chest pain [Recovering/Resolving]

NARRATIVE: CASE EVENT DATE: 20180627
